FAERS Safety Report 20545720 (Version 1)
Quarter: 2022Q1

REPORT INFORMATION
  Report Type: Spontaneous
  Country: US (occurrence: None)
  Receive Date: 20220303
  Receipt Date: 20220303
  Transmission Date: 20220423
  Serious: Yes (Death, Life-Threatening, Hospitalization, Other)
  Sender: FDA-Public Use
  Company Number: US-MICRO LABS LIMITED-ML2022-00709

PATIENT
  Age: 79 Year
  Sex: Male

DRUGS (1)
  1. ATORVASTATIN [Suspect]
     Active Substance: ATORVASTATIN
     Indication: Cerebrovascular accident
     Dates: start: 201809, end: 202002

REACTIONS (4)
  - Respiratory failure [Fatal]
  - Dysarthria [Unknown]
  - Muscle necrosis [Fatal]
  - Quadriparesis [Unknown]

NARRATIVE: CASE EVENT DATE: 20191101
